FAERS Safety Report 4423735-3 (Version None)
Quarter: 2004Q3

REPORT INFORMATION
  Report Type: 
  Country: None (occurrence: None)
  Receive Date: 20040805
  Receipt Date: 20040722
  Transmission Date: 20050211
  Serious: Yes (Hospitalization)
  Sender: FDA-Public Use
  Company Number: 2004AP03884

PATIENT
  Age: 75 Year
  Sex: Female

DRUGS (5)
  1. IRESSA [Suspect]
     Indication: LUNG ADENOCARCINOMA
     Dosage: 250 MG DAILY PO
     Route: 048
     Dates: start: 20040608, end: 20040616
  2. IREASSA [Suspect]
     Indication: LUNG ADENOCARCINOMA
     Dosage: 250 MG QOD PO
     Route: 048
     Dates: start: 20040629, end: 20040712
  3. IRESSA [Suspect]
     Indication: LUNG ADENOCARCINOMA
     Dosage: 250 MG QOD PO
     Route: 048
     Dates: start: 20040721
  4. ADALAT [Concomitant]
  5. PHENOBAL [Concomitant]

REACTIONS (4)
  - BLOOD ALKALINE PHOSPHATASE INCREASED [None]
  - C-REACTIVE PROTEIN INCREASED [None]
  - METASTASES TO LUNG [None]
  - WHITE BLOOD CELL COUNT DECREASED [None]
